FAERS Safety Report 5168668-2 (Version None)
Quarter: 2006Q4

REPORT INFORMATION
  Report Type: 
  Country: None (occurrence: None)
  Receive Date: 20061211
  Receipt Date: 20060516
  Transmission Date: 20070319
  Serious: Yes (Hospitalization)
  Sender: FDA-Public Use
  Company Number: 2006PK01115

PATIENT
  Age: 22907 Day
  Sex: Female

DRUGS (4)
  1. GEFITINIB [Suspect]
     Indication: BREAST CANCER METASTATIC
     Route: 048
     Dates: start: 20060223, end: 20060308
  2. NOLVADEX [Suspect]
     Indication: BREAST CANCER METASTATIC
     Route: 048
     Dates: start: 20060223, end: 20060308
  3. ACETAMINOPHEN [Concomitant]
     Indication: BONE PAIN
     Route: 048
     Dates: start: 20060216, end: 20060217
  4. BISPHOSPHONATE [Concomitant]

REACTIONS (4)
  - GASTROINTESTINAL HAEMORRHAGE [None]
  - RASH [None]
  - RASH GENERALISED [None]
  - RENAL FAILURE [None]
